FAERS Safety Report 10733450 (Version 2)
Quarter: 2015Q1

REPORT INFORMATION
  Report Type: Report from Study
  Country: JP (occurrence: JP)
  Receive Date: 20150123
  Receipt Date: 20150212
  Transmission Date: 20150721
  Serious: Yes (Hospitalization, Other)
  Sender: FDA-Public Use
  Company Number: JP-GILEAD-2014-0119240

PATIENT
  Age: 47 Year
  Sex: Male

DRUGS (6)
  1. NORVIR [Suspect]
     Active Substance: RITONAVIR
     Indication: HIV INFECTION
     Route: 048
     Dates: start: 20120117, end: 20120130
  2. ZITHROMAC [Suspect]
     Active Substance: AZITHROMYCIN DIHYDRATE
     Indication: OPPORTUNISTIC INFECTION PROPHYLAXIS
     Route: 048
     Dates: start: 20111227, end: 20120117
  3. BAKTAR [Suspect]
     Active Substance: SULFAMETHOXAZOLE\TRIMETHOPRIM
     Indication: ANTIFUNGAL PROPHYLAXIS
     Route: 048
     Dates: start: 20111227, end: 20120117
  4. EMTRICITABINE/TENOFOVIR DISOPROXIL FUMARATE [Suspect]
     Active Substance: EMTRICITABINE\TENOFOVIR DISOPROXIL
     Indication: HIV INFECTION
     Dosage: 1 DF, QD
     Route: 048
     Dates: start: 20120117, end: 20120130
  5. PREZISTANAIVE [Suspect]
     Active Substance: DARUNAVIR
     Indication: HIV INFECTION
     Route: 048
     Dates: start: 20120117, end: 20120130
  6. MEROPEN [Concomitant]
     Active Substance: MEROPENEM
     Indication: SEPSIS
     Route: 041
     Dates: start: 20120119, end: 20120123

REACTIONS (2)
  - Renal disorder [Recovered/Resolved]
  - Enterocolitis [Recovering/Resolving]

NARRATIVE: CASE EVENT DATE: 20120117
